FAERS Safety Report 6479615-5 (Version None)
Quarter: 2009Q4

REPORT INFORMATION
  Report Type: 
  Country: None (occurrence: None)
  Receive Date: 20091208
  Receipt Date: 20091130
  Transmission Date: 20100525
  Serious: Yes (Other)
  Sender: FDA-Public Use
  Company Number: US-JNJFOC-20091200544

PATIENT
  Sex: Female
  Weight: 81.65 kg

DRUGS (8)
  1. DURAGESIC-100 [Suspect]
     Route: 062
     Dates: start: 20030101, end: 20091101
  2. DURAGESIC-100 [Suspect]
     Indication: FIBROMYALGIA
     Route: 062
     Dates: start: 20030101, end: 20091101
  3. DURAGESIC-100 [Suspect]
     Route: 062
     Dates: start: 20091101
  4. TIZANIDINE HCL [Suspect]
     Indication: NAUSEA
     Route: 048
     Dates: start: 20091101
  5. VIVELLE-DOT [Concomitant]
     Indication: HORMONE REPLACEMENT THERAPY
     Route: 062
     Dates: start: 20060101
  6. DIAZEPAM [Concomitant]
     Indication: MUSCLE SPASMS
     Route: 048
     Dates: start: 20050101
  7. NEXIUM [Concomitant]
     Indication: GALLBLADDER OPERATION
     Route: 048
     Dates: start: 20010101
  8. CRESTOR [Concomitant]
     Indication: BLOOD CHOLESTEROL INCREASED
     Route: 048
     Dates: start: 19990101

REACTIONS (7)
  - DRUG INEFFECTIVE [None]
  - MALAISE [None]
  - NAUSEA [None]
  - SOMNOLENCE [None]
  - VITAMIN D DEFICIENCY [None]
  - VOMITING [None]
  - WRONG TECHNIQUE IN DRUG USAGE PROCESS [None]
